FAERS Safety Report 6639487-2 (Version None)
Quarter: 2010Q1

REPORT INFORMATION
  Report Type: 
  Country: None (occurrence: None)
  Receive Date: 20100318
  Receipt Date: 20100305
  Transmission Date: 20100710
  Serious: Yes (Death, Life-Threatening, Hospitalization)
  Sender: FDA-Public Use
  Company Number: JP-JNJFOC-20090805408

PATIENT
  Age: 65 Year
  Sex: Female
  Weight: 71 kg

DRUGS (62)
  1. DOXIL [Suspect]
     Indication: OVARIAN CANCER RECURRENT
     Dosage: CYCLE 1
     Route: 042
  2. GLUFAST [Concomitant]
     Route: 048
  3. ADJUST-A [Concomitant]
     Route: 048
  4. LASIX [Concomitant]
     Indication: OVARIAN CANCER
     Dosage: 20-40MG/DAY
     Route: 048
  5. LASIX [Concomitant]
     Route: 048
  6. LASIX [Concomitant]
     Route: 048
  7. MOHRUS TAPE [Concomitant]
     Route: 062
  8. NAUZELIN [Concomitant]
     Indication: OVARIAN CANCER
     Route: 054
  9. LANSOPRAZOLE [Concomitant]
     Route: 048
  10. MARZULENE-S [Concomitant]
     Route: 048
  11. PRIMPERAN INJ [Concomitant]
     Indication: OVARIAN CANCER
     Route: 048
  12. PRIMPERAN INJ [Concomitant]
     Route: 048
  13. KARY UNI [Concomitant]
     Route: 031
  14. AMOBAN [Concomitant]
     Route: 048
  15. LECICARBON [Concomitant]
     Route: 054
  16. DUROTEP [Concomitant]
     Dosage: 12.5UG-25UG-50UG-25UG
     Route: 062
  17. OXINORM [Concomitant]
     Route: 048
  18. HYPEN [Concomitant]
     Route: 048
  19. HIRUDOID CREAM [Concomitant]
     Route: 061
  20. SANCOBA [Concomitant]
     Dosage: 0.02%
     Route: 047
  21. VEEN 3G [Concomitant]
     Route: 042
  22. VEEN 3G [Concomitant]
     Route: 042
  23. NEOLAMIN 3B [Concomitant]
     Route: 042
  24. NEOLAMIN 3B [Concomitant]
     Route: 042
  25. NEOLAMIN 3B [Concomitant]
     Route: 042
  26. ALBUMIN (HUMAN) [Concomitant]
     Dosage: 12..5G/50ML
     Route: 042
  27. ALBUMIN (HUMAN) [Concomitant]
     Route: 042
  28. PRIMPERAN INJ [Concomitant]
     Route: 042
  29. VEEN D [Concomitant]
     Route: 042
  30. VEEN D [Concomitant]
     Route: 042
  31. ATARAX [Concomitant]
     Route: 042
  32. ZANTAC [Concomitant]
     Route: 042
  33. MIXED AMINO ACID CARBOHYDRATE ELECTROLYTE VITAMIN COMBINED DRUG [Concomitant]
     Route: 042
  34. PANTOL (PANTHENOL) [Concomitant]
     Route: 042
  35. ISOTONIC SODIUM CHLORIDE [Concomitant]
     Route: 042
  36. ISOTONIC SODIUM CHLORIDE [Concomitant]
     Route: 042
  37. ISOTONIC SODIUM CHLORIDE [Concomitant]
     Route: 042
  38. POTACOL-R [Concomitant]
     Route: 042
  39. FLOMOXEF SODIUM [Concomitant]
     Route: 042
  40. FLOMOXEF SODIUM [Concomitant]
     Dosage: 1-3 G/DAY
     Route: 042
  41. PROCHLORPERAZINE TAB [Concomitant]
     Indication: OVARIAN CANCER
     Route: 048
  42. OXYCONTIN [Concomitant]
     Route: 048
  43. HOKUNALIN [Concomitant]
     Route: 062
  44. GENTAMICIN [Concomitant]
     Route: 061
  45. ANPEC (MORPHINE HYDROCHLORIDE) [Concomitant]
     Route: 054
  46. ROHYPNOL [Concomitant]
     Route: 042
  47. INOVAN [Concomitant]
     Route: 041
  48. SERENACE [Concomitant]
     Route: 030
  49. ANDERM [Concomitant]
     Route: 061
  50. KOLANTYL(R) [Concomitant]
     Route: 048
  51. BUSCOPAN [Concomitant]
     Route: 048
  52. GASTER-D [Concomitant]
     Route: 048
  53. LOXONIN [Concomitant]
     Route: 048
  54. KENALOG [Concomitant]
     Route: 049
  55. LAXOBERON [Concomitant]
     Route: 048
  56. NOVOLIN R [Concomitant]
     Route: 058
  57. URSO 250 [Concomitant]
     Route: 048
  58. GENINAX [Concomitant]
     Route: 048
  59. NEUTROGIN [Concomitant]
     Route: 058
  60. GRAN [Concomitant]
     Indication: PROPHYLAXIS
     Route: 058
  61. ARTZ DISPO [Concomitant]
     Route: 014
  62. LASIX [Concomitant]
     Dosage: 20-40MG/DAY
     Route: 042

REACTIONS (9)
  - ASCITES [None]
  - DEVICE RELATED INFECTION [None]
  - OVARIAN CANCER [None]
  - PLEURAL EFFUSION [None]
  - PNEUMONIA [None]
  - PYREXIA [None]
  - RENAL IMPAIRMENT [None]
  - RESPIRATORY FAILURE [None]
  - URINARY TRACT INFECTION [None]
